FAERS Safety Report 7605499-5 (Version None)
Quarter: 2011Q3

REPORT INFORMATION
  Report Type: 
  Country: None (occurrence: None)
  Receive Date: 20110713
  Receipt Date: 20110708
  Transmission Date: 20111222
  Serious: No
  Sender: FDA-Public Use
  Company Number: VE-PFIZER INC-2011155850

PATIENT
  Age: 25 Year

DRUGS (2)
  1. EFFEXOR [Suspect]
     Indication: ANXIETY
     Dosage: 75 MG, 1X/DAY
     Route: 048
     Dates: start: 20110601
  2. EFFEXOR [Suspect]
     Indication: SOCIAL PHOBIA

REACTIONS (3)
  - LETHARGY [None]
  - SOMNOLENCE [None]
  - HEADACHE [None]
